FAERS Safety Report 22018875 (Version 1)
Quarter: 2023Q1

REPORT INFORMATION
  Report Type: Report from Study
  Country: US (occurrence: US)
  Receive Date: 20230222
  Receipt Date: 20230222
  Transmission Date: 20230418
  Serious: Yes (Death, Other)
  Sender: FDA-Public Use
  Company Number: US-ACADIA PHARMACEUTICALS INC.-ACA-2023-PIM-000372

PATIENT
  Sex: Female

DRUGS (11)
  1. NUPLAZID [Suspect]
     Active Substance: PIMAVANSERIN TARTRATE
     Indication: Parkinson^s disease psychosis
     Dosage: 34 MILLIGRAM, QD
     Route: 048
     Dates: start: 20220820, end: 20230116
  2. FERROUS SULFATE [Concomitant]
     Active Substance: FERROUS SULFATE
  3. POTASSIUM [Concomitant]
     Active Substance: POTASSIUM
  4. OLANZAPINE [Concomitant]
     Active Substance: OLANZAPINE
  5. QUETIAPINE [Concomitant]
     Active Substance: QUETIAPINE
  6. MEMANTINE [Concomitant]
     Active Substance: MEMANTINE
  7. METOPROLOL [Concomitant]
     Active Substance: METOPROLOL
  8. PANTOPRAZOLE [Concomitant]
     Active Substance: PANTOPRAZOLE
  9. RISPERIDONE [Concomitant]
     Active Substance: RISPERIDONE
  10. FUROSEMIDE [Concomitant]
     Active Substance: FUROSEMIDE
  11. CARBIDOPA\LEVODOPA [Concomitant]
     Active Substance: CARBIDOPA\LEVODOPA

REACTIONS (1)
  - Respiratory disorder [Recovered/Resolved]
